FAERS Safety Report 21526830 (Version 1)
Quarter: 2022Q4

REPORT INFORMATION
  Report Type: Report from Study
  Country: GB (occurrence: GB)
  Receive Date: 20221031
  Receipt Date: 20221031
  Transmission Date: 20230113
  Serious: Yes (Other)
  Sender: FDA-Public Use
  Company Number: GB-CELLTRION INC.-2022GB017757

PATIENT

DRUGS (4)
  1. INFLIXIMAB [Suspect]
     Active Substance: INFLIXIMAB
     Indication: Product used for unknown indication
     Dosage: UNKNOWN
     Route: 065
  2. IMRALDI [Suspect]
     Active Substance: ADALIMUMAB
     Indication: Crohn^s disease
     Dosage: 80 MG/ WEEK TWO
     Route: 058
  3. IMRALDI [Suspect]
     Active Substance: ADALIMUMAB
     Dosage: 160 MG/ WEEK ZERO
     Route: 058
     Dates: start: 20220728
  4. IMRALDI [Suspect]
     Active Substance: ADALIMUMAB
     Dosage: 40 MG EVERY 2 WEEKS
     Route: 058

REACTIONS (4)
  - Crohn^s disease [Unknown]
  - Iron deficiency [Not Recovered/Not Resolved]
  - Fatigue [Recovered/Resolved]
  - Hypertension [Unknown]
